FAERS Safety Report 8008922-X (Version None)
Quarter: 2011Q4

REPORT INFORMATION
  Report Type: 
  Country: None (occurrence: None)
  Receive Date: 20111227
  Receipt Date: 20111221
  Transmission Date: 20120403
  Serious: Yes (Hospitalization)
  Sender: FDA-Public Use
  Company Number: BR-PFIZER INC-2011299932

PATIENT
  Age: 74 Year
  Sex: Male
  Weight: 84 kg

DRUGS (8)
  1. LINAGLIPTIN [Concomitant]
     Indication: DIABETES MELLITUS
     Dosage: UNK
     Dates: start: 20111201
  2. VARENICLINE TARTRATE [Suspect]
     Dosage: 0.5 MG, EVERY 12 HOURS
     Route: 048
     Dates: start: 20110101, end: 20111201
  3. LASIX [Concomitant]
     Indication: CARDIAC DISORDER
     Dosage: UNK
  4. OMEPRAZOLE [Concomitant]
     Indication: GASTRIC DISORDER
     Dosage: UNK
  5. ASPIRIN [Concomitant]
     Indication: CARDIAC DISORDER
     Dosage: UNK
  6. METOPROLOL SUCCINATE [Concomitant]
     Indication: CARDIAC DISORDER
     Dosage: UNK
  7. VARENICLINE TARTRATE [Suspect]
     Indication: TOBACCO USER
     Dosage: UNK
     Route: 048
     Dates: start: 20111124, end: 20110101
  8. CRESTOR [Concomitant]
     Indication: CARDIAC DISORDER
     Dosage: UNK

REACTIONS (4)
  - PRURITUS [None]
  - VASCULAR OCCLUSION [None]
  - HYPERSENSITIVITY [None]
  - CORONARY ARTERY OCCLUSION [None]
